FAERS Safety Report 9122554 (Version 1)
Quarter: 2013Q1

REPORT INFORMATION
  Report Type: Spontaneous
  Country: HR (occurrence: HR)
  Receive Date: 20130114
  Receipt Date: 20130114
  Transmission Date: 20140127
  Serious: Yes (Life-Threatening)
  Sender: FDA-Public Use
  Company Number: HR-PFIZER INC-2013010939

PATIENT
  Age: 59 Year
  Sex: Male
  Weight: 71 kg

DRUGS (2)
  1. CISPLATIN [Suspect]
     Indication: GASTRIC CANCER
     Dosage: 150 MG, UNK
     Route: 042
     Dates: start: 20120905, end: 20120909
  2. FLUOROURACIL [Suspect]
     Indication: GASTRIC CANCER
     Dosage: 150 MG, UNK
     Route: 042
     Dates: start: 20120905, end: 20120909

REACTIONS (4)
  - Febrile neutropenia [Unknown]
  - Headache [Unknown]
  - Aphthous stomatitis [Unknown]
  - White blood cell count decreased [Unknown]
